FAERS Safety Report 9375884 (Version 3)
Quarter: 2013Q3

REPORT INFORMATION
  Report Type: Spontaneous
  Country: FR (occurrence: FR)
  Receive Date: 20130628
  Receipt Date: 20130709
  Transmission Date: 20140515
  Serious: Yes (Hospitalization)
  Sender: FDA-Public Use
  Company Number: FR-US-EMD SERONO, INC.-7219681

PATIENT
  Age: 34 Year
  Sex: Female
  Weight: 80 kg

DRUGS (2)
  1. CETROTIDE (CETRORELIX ACETATE FOR INJECTION) [Suspect]
     Indication: IN VITRO FERTILISATION
     Route: 058
     Dates: start: 20130611, end: 20130612
  2. PUREGON                            /01348901/ [Concomitant]
     Indication: IN VITRO FERTILISATION
     Dosage: 300
     Route: 058
     Dates: start: 20130606, end: 20130612

REACTIONS (3)
  - Hypersensitivity [Recovered/Resolved]
  - Anaphylactic reaction [Recovered/Resolved]
  - Injection site urticaria [Recovered/Resolved]
